FAERS Safety Report 15786553 (Version 10)
Quarter: 2019Q2

REPORT INFORMATION
  Report Type: Report from Study
  Country: DE (occurrence: DE)
  Receive Date: 20190103
  Receipt Date: 20190524
  Transmission Date: 20190711
  Serious: Yes (Death, Life-Threatening, Hospitalization, Other)
  Sender: FDA-Public Use
  Company Number: PHHY2018DE152990

PATIENT
  Sex: Female
  Weight: 72 kg

DRUGS (7)
  1. CLOPIDOGREL [Suspect]
     Active Substance: CLOPIDOGREL BISULFATE
     Indication: PRODUCT USED FOR UNKNOWN INDICATION
     Dosage: UNK
     Route: 065
  2. LETROZOLE. [Concomitant]
     Active Substance: LETROZOLE
     Indication: PRODUCT USED FOR UNKNOWN INDICATION
     Route: 065
  3. CANDESARTAN. [Concomitant]
     Active Substance: CANDESARTAN
     Indication: PRODUCT USED FOR UNKNOWN INDICATION
     Dosage: UNK
     Route: 065
  4. HCTZ [Concomitant]
     Active Substance: HYDROCHLOROTHIAZIDE
     Indication: PRODUCT USED FOR UNKNOWN INDICATION
     Dosage: UNK
     Route: 065
  5. KISQALI [Suspect]
     Active Substance: RIBOCICLIB
     Indication: BREAST CANCER METASTATIC
     Dosage: 600 MG, 3 WEEKS, 1 WEEK PAUSE
     Route: 048
     Dates: start: 20181029, end: 20181210
  6. EXEMESTAN ACCORD [Suspect]
     Active Substance: EXEMESTANE
     Indication: BREAST CANCER METASTATIC
     Dosage: 25 MG, QD
     Route: 048
     Dates: start: 20181029, end: 20190113
  7. KISQALI [Suspect]
     Active Substance: RIBOCICLIB
     Dosage: 200 MG, UNK  (RESIDUAL CYCLE 2)
     Route: 048
     Dates: start: 20181211, end: 20190113

REACTIONS (29)
  - Malignant neoplasm progression [Fatal]
  - Asthenia [Recovered/Resolved]
  - Fatigue [Recovered/Resolved]
  - Activated partial thromboplastin time prolonged [Unknown]
  - Oedema peripheral [Unknown]
  - Blood creatinine increased [Unknown]
  - Vomiting [Recovered/Resolved]
  - Fatigue [Fatal]
  - Abdominal pain upper [Recovering/Resolving]
  - Pelvic fluid collection [Unknown]
  - Breast cancer metastatic [Fatal]
  - Calcium deficiency [Fatal]
  - Anaemia [Recovered/Resolved]
  - Cholelithiasis [Unknown]
  - Visual impairment [Unknown]
  - C-reactive protein increased [Not Recovered/Not Resolved]
  - Asthenia [Fatal]
  - Alanine aminotransferase increased [Unknown]
  - Epistaxis [Not Recovered/Not Resolved]
  - Blood uric acid increased [Unknown]
  - Hyperbilirubinaemia [Fatal]
  - Palpitations [Recovering/Resolving]
  - Blood potassium increased [Unknown]
  - Gamma-glutamyltransferase increased [Not Recovered/Not Resolved]
  - Hepatomegaly [Unknown]
  - Eastern Cooperative Oncology Group performance status worsened [Recovered/Resolved]
  - Aspartate aminotransferase increased [Unknown]
  - Nausea [Unknown]
  - Eastern Cooperative Oncology Group performance status worsened [Unknown]

NARRATIVE: CASE EVENT DATE: 20181105
